FAERS Safety Report 6438870-8 (Version None)
Quarter: 2009Q4

REPORT INFORMATION
  Report Type: 
  Country: None (occurrence: None)
  Receive Date: 20091113
  Receipt Date: 20091105
  Transmission Date: 20100525
  Serious: Yes (Hospitalization)
  Sender: FDA-Public Use
  Company Number: FR-SOLVAY-00209006753

PATIENT
  Age: 65 Year
  Sex: Male

DRUGS (23)
  1. KARDEGIC [Concomitant]
     Indication: DRUG USE FOR UNKNOWN INDICATION
     Dosage: DAILY DOSE:  UNKNOWN
     Route: 065
     Dates: end: 20090407
  2. COVERSYL 2MG [Suspect]
     Indication: DRUG USE FOR UNKNOWN INDICATION
     Dosage: DAILY DOSE: 2 MILLIGRAM(S), FREQUENCY: ONCE A DAY
     Route: 048
     Dates: end: 20090404
  3. COVERSYL 2MG [Suspect]
     Dosage: DAILY DOSE: 4 MILLIGRAM(S)
     Route: 048
     Dates: start: 20090405, end: 20090406
  4. COVERSYL 2MG [Suspect]
     Dosage: DAILY DOSE: 8 MILLIGRAM(S)
     Route: 048
     Dates: start: 20090407, end: 20090422
  5. COVERSYL 2MG [Suspect]
     Dosage: DAILY DOSE:  UNKNOWN, AS USED: 2 MILLIGRAM(S)
     Route: 065
     Dates: start: 20090430
  6. TAHOR [Concomitant]
     Indication: DRUG USE FOR UNKNOWN INDICATION
     Dosage: DAILY DOSE:  UNKNOWN
     Route: 065
  7. LASILIX [Suspect]
     Indication: DRUG USE FOR UNKNOWN INDICATION
     Dosage: DAILY DOSE: 500 MILLIGRAM(S), FREQUENCY: ONCE A DAY
     Route: 065
     Dates: start: 20090408, end: 20090408
  8. LASILIX [Suspect]
     Dosage: DAILY DOSE: 250 MILLIGRAM(S), FREQUENCY:ONCE A DAY
     Route: 065
     Dates: start: 20090409, end: 20090411
  9. LASILIX [Suspect]
     Dosage: DAILY DOSE: 40 MILLIGRAM(S), FREQUENCY:ONCE A DAY
     Route: 065
     Dates: start: 20090412, end: 20090414
  10. LASILIX [Suspect]
     Dosage: DAILY DOSE: 20 MILLIGRAM(S)
     Route: 065
     Dates: start: 20090415, end: 20090415
  11. LASILIX [Suspect]
     Dosage: DAILY DOSE: 80 MILLIGRAM(S)
     Route: 065
     Dates: start: 20090416, end: 20090417
  12. LASILIX [Suspect]
     Dosage: DAILY DOSE: 160 MILLIGRAM(S), FREQUENCY:ONCE A DAY
     Route: 065
     Dates: start: 20090418, end: 20090421
  13. LASILIX [Suspect]
     Dosage: DAILY DOSE: 80 MILLIGRAM(S)
     Route: 065
     Dates: start: 20090422, end: 20090423
  14. LASILIX [Suspect]
     Dosage: DAILY DOSE: 1 GRAM(S)
     Route: 065
     Dates: start: 20090424, end: 20090425
  15. LASILIX [Suspect]
     Dosage: DAILY DOSE: 250 MILLIGRAM(S)
     Route: 065
     Dates: start: 20090426, end: 20090429
  16. CARDENSIEL [Concomitant]
     Indication: DRUG USE FOR UNKNOWN INDICATION
     Dosage: DAILY DOSE:  UNKNOWN
     Route: 065
     Dates: end: 20090407
  17. CARDENSIEL [Concomitant]
     Dosage: DAILY DOSE: 7.5 MILLIGRAM(S), 5 MILLIGRAM(S) IN THE MORNING AND 2.5 MILLIGRAM(S) IN THE EVENING
     Route: 065
     Dates: start: 20090407
  18. TRILEPTAL [Suspect]
     Indication: DRUG USE FOR UNKNOWN INDICATION
     Dosage: DAILY DOSE: 600 MILLIGRAM(S), FREQUENCY: TWICE A DAY
     Route: 048
     Dates: end: 20090422
  19. ORBENIN CAP [Concomitant]
     Indication: DRUG USE FOR UNKNOWN INDICATION
     Dosage: DAILY DOSE:  UNKNOWN
     Route: 065
     Dates: end: 20090407
  20. NEXIUM [Suspect]
     Indication: DRUG USE FOR UNKNOWN INDICATION
     Dosage: DAILY DOSE: 40 MILLIGRAM(S),  FREQUENCY: ONCE A DAY
     Route: 048
  21. ATARAX [Concomitant]
     Indication: DRUG USE FOR UNKNOWN INDICATION
     Dosage: DAILY DOSE:  UNKNOWN
     Route: 065
  22. LOVENOX [Concomitant]
     Indication: DRUG USE FOR UNKNOWN INDICATION
     Dosage: DAILY DOSE:  UNKNOWN
     Route: 065
     Dates: end: 20090407
  23. NOVONORM [Concomitant]
     Indication: DRUG USE FOR UNKNOWN INDICATION
     Dosage: DAILY DOSE:  UNKNOWN
     Route: 065

REACTIONS (7)
  - BLOOD CREATININE INCREASED [None]
  - CARDIAC FAILURE [None]
  - HYPERKALAEMIA [None]
  - HYPOCHLORAEMIA [None]
  - HYPONATRAEMIA [None]
  - LEFT VENTRICULAR DYSFUNCTION [None]
  - RENAL FAILURE [None]
